FAERS Safety Report 8894131 (Version 1)
Quarter: 2012Q4

REPORT INFORMATION
  Report Type: 
  Country: US (occurrence: US)
  Receive Date: 20121107
  Receipt Date: 20121107
  Transmission Date: 20130627
  Serious: No
  Sender: FDA-Public Use
  Company Number: US-AMGEN-USASP2011061692

PATIENT
  Age: 49 Year
  Sex: Female

DRUGS (2)
  1. ENBREL [Suspect]
     Indication: SPONDYLOARTHROPATHY
     Dosage: 50 mg, qwk
     Dates: start: 20100916, end: 20110201
  2. HUMIRA [Concomitant]

REACTIONS (2)
  - Herpes zoster [Unknown]
  - Lipoma [Unknown]
